FAERS Safety Report 10006287 (Version 1)
Quarter: 2014Q1

REPORT INFORMATION
  Report Type: Spontaneous
  Country: US (occurrence: US)
  Receive Date: 20140313
  Receipt Date: 20140313
  Transmission Date: 20141002
  Serious: Yes (Hospitalization)
  Sender: FDA-Public Use
  Company Number: US-BAYER-2014-037247

PATIENT
  Age: 30 Year
  Sex: Female

DRUGS (12)
  1. YAZ [Suspect]
     Route: 048
  2. MEPERIDINE [Concomitant]
     Dosage: 50 MG, EVERY 4 TO 6 HOURS
     Route: 048
     Dates: start: 20080110
  3. CEPHALEXIN [Concomitant]
     Dosage: 500 MG, QID
     Route: 048
     Dates: start: 20080110
  4. CYCLOBENZAPRINE [Concomitant]
     Dosage: 10 MG, EVERY 6 TO 8 HOURS AS NEEDED
     Route: 048
     Dates: start: 20080110
  5. HYDROCODONE/ACETAMINOPHEN [Concomitant]
     Dosage: 5-500 MG EVERY 4 TO 6 HOURS AS NEEDED
     Route: 048
     Dates: start: 20080117
  6. DIAZEPAM [Concomitant]
     Dosage: 2MG EVERY 4 TO 6 HOURS AS NEEDED
     Route: 048
     Dates: start: 20080118
  7. COUMADIN [Concomitant]
     Indication: PULMONARY EMBOLISM
  8. ALBUTEROL INHALER [Concomitant]
  9. VALIUM [Concomitant]
  10. FLEXERIL [Concomitant]
  11. LEVAQUIN [Concomitant]
  12. PERCOCET [Concomitant]

REACTIONS (1)
  - Pulmonary embolism [None]
